FAERS Safety Report 8533388-0 (Version None)
Quarter: 2012Q3

REPORT INFORMATION
  Report Type: 
  Country: None (occurrence: None)
  Receive Date: 20120724
  Receipt Date: 20120720
  Transmission Date: 20120928
  Serious: Yes (Death, Hospitalization, Other)
  Sender: FDA-Public Use
  Company Number: PHEH2010US03875

PATIENT
  Sex: Male

DRUGS (19)
  1. TAXOTERE [Concomitant]
     Dosage: 68 MG IV OVER AN HOUR
     Route: 042
  2. ALOXI [Concomitant]
     Dosage: 25 MG
     Route: 042
  3. ALLOPURINOL [Concomitant]
  4. AREDIA [Suspect]
     Indication: OSTEOPOROSIS
     Dosage: 90 MG,
  5. ZOMETA [Suspect]
     Indication: METASTASES TO PROSTATE
     Dosage: 4 MG,
  6. CASODEX [Concomitant]
  7. DECADRON [Concomitant]
     Dosage: 4 MG
     Route: 042
  8. PLAVIX [Concomitant]
     Dosage: 75 MG, QD
     Route: 048
  9. NOVANTRONE [Concomitant]
  10. CELEBREX [Concomitant]
  11. MORPHINE ^ADRIAN^ [Concomitant]
  12. PREDNISONE [Concomitant]
  13. LOTREL [Concomitant]
  14. ROXICODONE [Concomitant]
     Dosage: 15 MG
  15. INDOMETHACIN [Concomitant]
  16. LEVAQUIN [Concomitant]
     Dosage: 500 MG, QD
  17. ZOLOFT [Concomitant]
     Dosage: 50 MG , DAILY
     Route: 048
  18. SODIUM CHLORIDE [Concomitant]
  19. PROCRIT                            /00909301/ [Concomitant]
     Dosage: 40000 U

REACTIONS (55)
  - CELLULITIS [None]
  - PRIMARY SEQUESTRUM [None]
  - SWELLING [None]
  - LUMBAR SPINAL STENOSIS [None]
  - RENAL ATROPHY [None]
  - HAEMATURIA [None]
  - FLUID RETENTION [None]
  - METASTASES TO CENTRAL NERVOUS SYSTEM [None]
  - DYSPHAGIA [None]
  - OSTEOMYELITIS ACUTE [None]
  - PAIN IN EXTREMITY [None]
  - INTERVERTEBRAL DISC PROTRUSION [None]
  - SKIN CANCER [None]
  - ANAEMIA [None]
  - URINARY TRACT INFECTION [None]
  - OSTEONECROSIS OF JAW [None]
  - ABSCESS JAW [None]
  - METASTASES TO BONE [None]
  - METASTASES TO SPINE [None]
  - TRANSIENT ISCHAEMIC ATTACK [None]
  - CONFUSIONAL STATE [None]
  - INSOMNIA [None]
  - MYALGIA [None]
  - EXPOSED BONE IN JAW [None]
  - SPINAL OSTEOARTHRITIS [None]
  - CAROTID ARTERIAL EMBOLUS [None]
  - THROMBOCYTOPENIA [None]
  - NEOPLASM PROGRESSION [None]
  - OBESITY [None]
  - HYPOAESTHESIA [None]
  - OSTEOSCLEROSIS [None]
  - BACK PAIN [None]
  - GOUTY ARTHRITIS [None]
  - OSTEOARTHRITIS [None]
  - HEMIPARESIS [None]
  - OEDEMA PERIPHERAL [None]
  - HYDRONEPHROSIS [None]
  - METASTASES TO LYMPH NODES [None]
  - DEPRESSION [None]
  - PAIN [None]
  - MENTAL STATUS CHANGES [None]
  - NEOPLASM MALIGNANT [None]
  - ECCHYMOSIS [None]
  - PARAESTHESIA [None]
  - OSTEOMYELITIS CHRONIC [None]
  - ACTINOMYCOSIS [None]
  - BONE PAIN [None]
  - CAROTID ARTERY STENOSIS [None]
  - BRAIN OEDEMA [None]
  - DEATH [None]
  - INJURY [None]
  - OSTEITIS [None]
  - RESTLESSNESS [None]
  - DRY MOUTH [None]
  - ASTHENIA [None]
